FAERS Safety Report 5603154-4 (Version None)
Quarter: 2008Q1

REPORT INFORMATION
  Report Type: 
  Country: None (occurrence: None)
  Receive Date: 20080125
  Receipt Date: 20080114
  Transmission Date: 20080703
  Serious: Yes (Hospitalization, Other)
  Sender: FDA-Public Use
  Company Number: US-PFIZER INC-2008005395

PATIENT
  Sex: Female

DRUGS (1)
  1. CHANTIX [Suspect]

REACTIONS (9)
  - ABNORMAL BEHAVIOUR [None]
  - AMNESIA [None]
  - CRYING [None]
  - DISTURBANCE IN ATTENTION [None]
  - INAPPROPRIATE AFFECT [None]
  - MAJOR DEPRESSION [None]
  - MANIA [None]
  - NAUSEA [None]
  - SUICIDAL IDEATION [None]
